FAERS Safety Report 9408309 (Version 6)
Quarter: 2014Q2

REPORT INFORMATION
  Report Type: Spontaneous
  Country: US (occurrence: US)
  Receive Date: 20130718
  Receipt Date: 20140520
  Transmission Date: 20141212
  Serious: Yes (Hospitalization)
  Sender: FDA-Public Use
  Company Number: US-GLAXOSMITHKLINE-A1033989A

PATIENT
  Age: 74 Year
  Sex: Female

DRUGS (5)
  1. FLOLAN [Suspect]
     Indication: PULMONARY ARTERIAL HYPERTENSION
     Dosage: 50NGKM CONTINUOUS
     Route: 042
     Dates: start: 20030328
  2. COUMADIN [Concomitant]
  3. REVATIO [Concomitant]
  4. ADCIRCA [Concomitant]
  5. VELETRI [Concomitant]

REACTIONS (9)
  - Hip fracture [Recovered/Resolved]
  - Hip arthroplasty [Recovered/Resolved]
  - Hydrocephalus [Not Recovered/Not Resolved]
  - Fall [Recovered/Resolved]
  - Shunt malfunction [Unknown]
  - Investigation [Not Recovered/Not Resolved]
  - Dyspnoea [Unknown]
  - Cardiac failure [Unknown]
  - Pulmonary hypertension [Unknown]
